FAERS Safety Report 17912940 (Version 2)
Quarter: 2020Q4

REPORT INFORMATION
  Report Type: Spontaneous
  Country: US (occurrence: US)
  Receive Date: 20200618
  Receipt Date: 20201020
  Transmission Date: 20210113
  Serious: Yes (Death, Other)
  Sender: FDA-Public Use
  Company Number: US-MYLANLABS-2020M1057210

PATIENT
  Age: 65 Year
  Sex: Male
  Weight: 73 kg

DRUGS (7)
  1. LATANOPROST. [Concomitant]
     Active Substance: LATANOPROST
     Indication: INTRAOCULAR PRESSURE INCREASED
     Dosage: 0.005 PERCENT AS NEEDED
     Dates: start: 20120131, end: 201802
  2. VALSARTAN AND HYDROCHLOROTHIAZIDE TABLETS, USP [Suspect]
     Active Substance: HYDROCHLOROTHIAZIDE\VALSARTAN
     Indication: HYPERTENSION
     Dosage: UNK
     Dates: start: 20141112, end: 20150210
  3. VALSARTAN AND HYDROCHLOROTHIAZIDE TABLETS, USP [Suspect]
     Active Substance: HYDROCHLOROTHIAZIDE\VALSARTAN
     Indication: HYPERTENSION
     Dosage: UNK
     Dates: start: 20121115, end: 20141221
  4. VALSARTAN HCT [Suspect]
     Active Substance: HYDROCHLOROTHIAZIDE\VALSARTAN
     Indication: HYPERTENSION
     Dosage: UNK
     Dates: start: 20150202, end: 20150803
  5. METFORMIN HCL [Concomitant]
     Active Substance: METFORMIN HYDROCHLORIDE
     Indication: DIABETES MELLITUS
     Dosage: 1000 MILLIGRAM, BID
     Dates: start: 20110623, end: 2016
  6. LABETALOL HCL [Concomitant]
     Active Substance: LABETALOL HYDROCHLORIDE
     Indication: HYPERTENSION
     Dosage: 200 MILLIGRAM, BID
     Dates: start: 20110612, end: 201301
  7. VALSARTAN HCT [Suspect]
     Active Substance: HYDROCHLOROTHIAZIDE\VALSARTAN
     Indication: HYPERTENSION
     Dosage: UNK
     Dates: start: 20150820, end: 20160904

REACTIONS (7)
  - Gastric cancer [Unknown]
  - Prostate cancer [Unknown]
  - Metastases to bone [Fatal]
  - Hepatic cancer [Unknown]
  - Cholangiocarcinoma [Fatal]
  - Bile duct cancer stage III [Fatal]
  - Bone cancer [Fatal]

NARRATIVE: CASE EVENT DATE: 201503
